FAERS Safety Report 9966842 (Version 2)
Quarter: 2014Q1

REPORT INFORMATION
  Report Type: Report from Study
  Country: US (occurrence: US)
  Receive Date: 20140305
  Receipt Date: 20140305
  Transmission Date: 20141002
  Serious: No
  Sender: FDA-Public Use
  Company Number: US-ABBVIE-13P-163-1096270-00

PATIENT
  Sex: Male
  Weight: 99.88 kg

DRUGS (18)
  1. HUMIRA [Suspect]
     Indication: PSORIASIS
     Dates: start: 201009, end: 201109
  2. HUMIRA [Suspect]
     Indication: PSORIATIC ARTHROPATHY
     Dates: start: 201212
  3. HUMIRA [Suspect]
     Indication: COLITIS ULCERATIVE
     Dates: start: 2011, end: 2011
  4. HUMIRA [Suspect]
     Dates: start: 201212, end: 201212
  5. ASPIRIN [Concomitant]
     Indication: CARDIOVASCULAR EVENT PROPHYLAXIS
     Dosage: 2 TO 3 TIMES WEEKLY
     Route: 048
  6. BENADRYL [Concomitant]
     Indication: INSOMNIA
     Route: 048
  7. ATENOLOL [Concomitant]
     Indication: HYPERTENSION
     Dosage: 50 MG DAILY
  8. FLOMAX [Concomitant]
     Indication: PROSTATIC DISORDER
     Dosage: 0.4 MG DAILY
     Route: 048
  9. MEVACOR [Concomitant]
     Indication: BLOOD CHOLESTEROL INCREASED
     Dosage: 20 MG DAILY
     Route: 048
  10. CLODERM [Concomitant]
     Indication: PSORIASIS
  11. OMEPRAZOLE [Concomitant]
     Indication: GASTROOESOPHAGEAL REFLUX DISEASE
     Dosage: 20 MG DAILY
     Route: 048
  12. LASIX [Concomitant]
     Indication: OEDEMA
     Dosage: 20MG AND 40 MG ONCE A DAY = 60MG
  13. VITAMIN D [Concomitant]
     Indication: PRODUCT USED FOR UNKNOWN INDICATION
     Dosage: 1000 IU DAILY
     Route: 048
  14. CICLOPIROX [Concomitant]
     Indication: TINEA CRURIS
     Dosage: AS NEEDED
  15. LIALDA [Concomitant]
     Indication: COLITIS ULCERATIVE
     Route: 048
  16. NIACIN [Concomitant]
     Indication: BLOOD TRIGLYCERIDES INCREASED
     Dosage: 500MG DAILY
     Route: 048
  17. CELEBREX [Concomitant]
     Indication: PSORIATIC ARTHROPATHY
     Dosage: DAILY
     Route: 048
  18. ASACOL [Concomitant]
     Indication: COLITIS ULCERATIVE

REACTIONS (15)
  - Feeling hot [Not Recovered/Not Resolved]
  - Drug effect delayed [Unknown]
  - Colitis ulcerative [Recovering/Resolving]
  - Psoriatic arthropathy [Recovering/Resolving]
  - Psoriasis [Recovering/Resolving]
  - Drug effect incomplete [Not Recovered/Not Resolved]
  - Pain in extremity [Not Recovered/Not Resolved]
  - Skin lesion [Not Recovered/Not Resolved]
  - Fungal infection [Recovered/Resolved]
  - Streptococcal infection [Recovered/Resolved]
  - Nausea [Recovered/Resolved]
  - Fatigue [Not Recovered/Not Resolved]
  - Nasopharyngitis [Recovered/Resolved]
  - Psoriasis [Not Recovered/Not Resolved]
  - Psoriasis [Recovered/Resolved]
